FAERS Safety Report 9868752 (Version 3)
Quarter: 2014Q4

REPORT INFORMATION
  Report Type: Spontaneous
  Country: US (occurrence: US)
  Receive Date: 20140204
  Receipt Date: 20141017
  Transmission Date: 20150529
  Serious: Yes (Death, Hospitalization, Disabling, Other)
  Sender: FDA-Public Use
  Company Number: US-009507513-1401USA014874

PATIENT
  Sex: Female

DRUGS (1)
  1. NUVARING [Suspect]
     Active Substance: ETHINYL ESTRADIOL\ETONOGESTREL
     Indication: PRODUCT USED FOR UNKNOWN INDICATION
     Route: 067

REACTIONS (25)
  - Death [Fatal]
  - Postictal state [Unknown]
  - Adverse event [Unknown]
  - Cerebrovascular accident [Unknown]
  - Renal stone removal [Unknown]
  - Seizure [Not Recovered/Not Resolved]
  - Depression [Unknown]
  - Gastrointestinal disorder [Unknown]
  - Anxiety [Unknown]
  - Drug hypersensitivity [Unknown]
  - Head injury [Unknown]
  - Transaminases increased [Unknown]
  - Colectomy [Unknown]
  - Anticoagulation drug level below therapeutic [Unknown]
  - Adverse drug reaction [Unknown]
  - Pulmonary embolism [Unknown]
  - Seizure [Unknown]
  - Seizure [Unknown]
  - Fall [Unknown]
  - Gastric bypass [Unknown]
  - Drug dependence [Unknown]
  - Acute kidney injury [Unknown]
  - Nephrolithiasis [Unknown]
  - Anaemia [Unknown]
  - Dermatitis allergic [Unknown]

NARRATIVE: CASE EVENT DATE: 2006
